FAERS Safety Report 12635028 (Version 1)
Quarter: 2016Q3

REPORT INFORMATION
  Report Type: Spontaneous
  Country: US (occurrence: US)
  Receive Date: 20160808
  Receipt Date: 20160808
  Transmission Date: 20161109
  Serious: Yes (Other)
  Sender: FDA-Public Use
  Company Number: US-B.I. PHARMACEUTICALS,INC./RIDGEFIELD-2016-BI-49712BP

PATIENT
  Sex: Male

DRUGS (3)
  1. CATAPRES-TTS [Suspect]
     Active Substance: CLONIDINE
     Dosage: 0.7143 MG
     Route: 048
     Dates: start: 2008, end: 2016
  2. CATAPRES-TTS [Suspect]
     Active Substance: CLONIDINE
     Dosage: 0.3571 MG
     Route: 065
     Dates: start: 201605
  3. CATAPRES-TTS [Suspect]
     Active Substance: CLONIDINE
     Indication: HYPERTENSION
     Dosage: 0.3571 MG
     Route: 048
     Dates: start: 2008

REACTIONS (4)
  - Intestinal obstruction [Recovered/Resolved]
  - Drug ineffective [Recovered/Resolved]
  - Renal ischaemia [Not Recovered/Not Resolved]
  - Hypotension [Not Recovered/Not Resolved]

NARRATIVE: CASE EVENT DATE: 2008
